FAERS Safety Report 9582611 (Version 1)
Quarter: 2013Q4

REPORT INFORMATION
  Report Type: Spontaneous
  Country: US (occurrence: US)
  Receive Date: 20131002
  Receipt Date: 20131002
  Transmission Date: 20140711
  Serious: No
  Sender: FDA-Public Use
  Company Number: US-AMGEN-USASP2013041793

PATIENT
  Age: 58 Year
  Sex: Male
  Weight: 86.17 kg

DRUGS (4)
  1. ENBREL [Suspect]
     Indication: PRODUCT USED FOR UNKNOWN INDICATION
     Dosage: 50 MG/ML, QWK
     Route: 058
     Dates: start: 2011
  2. PREDNISONE [Concomitant]
     Dosage: 2.5 MG, UNK
  3. LISINOPRIL HCTZ [Concomitant]
     Dosage: 10-12.5
  4. COLCRYS [Concomitant]
     Dosage: 0.6 MG, UNK

REACTIONS (1)
  - Rheumatoid arthritis [Unknown]
